APPROVED DRUG PRODUCT: ARRANON
Active Ingredient: NELARABINE
Strength: 250MG/50ML (5MG/ML)
Dosage Form/Route: INJECTABLE;INTRAVENOUS
Application: N021877 | Product #001 | TE Code: AP
Applicant: SANDOZ INC
Approved: Oct 28, 2005 | RLD: Yes | RS: Yes | Type: RX